FAERS Safety Report 24766103 (Version 2)
Quarter: 2024Q4

REPORT INFORMATION
  Report Type: Spontaneous
  Country: US (occurrence: US)
  Receive Date: 20241223
  Receipt Date: 20241230
  Transmission Date: 20250115
  Serious: Yes (Hospitalization, Other)
  Sender: UNITED THERAPEUTICS
  Company Number: US-UNITED THERAPEUTICS-UNT-2024-039475

PATIENT
  Age: 33 Year
  Sex: Male

DRUGS (4)
  1. REMODULIN [Suspect]
     Active Substance: TREPROSTINIL
     Indication: Pulmonary veno-occlusive disease
     Dosage: UNK, CONTINUING
     Route: 041
  2. TADALAFIL [Concomitant]
     Active Substance: TADALAFIL
     Indication: Pulmonary veno-occlusive disease
     Dosage: UNK
  3. AMBRISENTAN [Concomitant]
     Active Substance: AMBRISENTAN
     Indication: Pulmonary veno-occlusive disease
     Dosage: UNK
  4. WARFARIN SODIUM [Concomitant]
     Active Substance: WARFARIN SODIUM
     Indication: Product used for unknown indication
     Dosage: UNK

REACTIONS (9)
  - Right ventricular failure [Recovered/Resolved]
  - Syncope [Unknown]
  - Pericardial effusion [Recovered/Resolved]
  - Pulmonary oedema [Recovered/Resolved]
  - General physical health deterioration [Recovered/Resolved]
  - Pulmonary veno-occlusive disease [Unknown]
  - Product use in unapproved indication [Unknown]
  - Pleural effusion [Recovered/Resolved]
  - Lymphadenopathy mediastinal [Unknown]
